FAERS Safety Report 9651836 (Version 1)
Quarter: 2013Q4

REPORT INFORMATION
  Report Type: Spontaneous
  Country: US (occurrence: US)
  Receive Date: 20131029
  Receipt Date: 20131029
  Transmission Date: 20140711
  Serious: No
  Sender: FDA-Public Use
  Company Number: US-ENDO PHARMACEUTICALS INC.-HCDA20120001

PATIENT
  Age: 5 Year
  Sex: Female

DRUGS (1)
  1. HYDROCODONE/ACETAMINOPHEN SOLUTION 7.5MG/500MG PER 15ML [Suspect]
     Indication: PRODUCT USED FOR UNKNOWN INDICATION
     Dosage: 3.25/250 MG
     Route: 048

REACTIONS (2)
  - Oral discomfort [Unknown]
  - Throat irritation [Unknown]
